FAERS Safety Report 14554671 (Version 3)
Quarter: 2018Q1

REPORT INFORMATION
  Report Type: Spontaneous
  Country: US (occurrence: US)
  Receive Date: 20180220
  Receipt Date: 20180309
  Transmission Date: 20180509
  Serious: Yes (Hospitalization, Other)
  Sender: FDA-Public Use
  Company Number: US-PURDUE PHARMA-USA-2018-0142761

PATIENT
  Sex: Male

DRUGS (1)
  1. OXYCODONE HYDROCHLORIDE (SIMILAR TO NDA 22-272) [Suspect]
     Active Substance: OXYCODONE HYDROCHLORIDE
     Indication: PAIN
     Dosage: 30 MG, QID
     Route: 048

REACTIONS (4)
  - Substance abuse [Unknown]
  - Coronary artery occlusion [Not Recovered/Not Resolved]
  - Chest pain [Not Recovered/Not Resolved]
  - Varicose vein [Unknown]

NARRATIVE: CASE EVENT DATE: 201802
